FAERS Safety Report 17885552 (Version 2)
Quarter: 2020Q2

REPORT INFORMATION
  Report Type: Report from Study
  Country: None (occurrence: DE)
  Receive Date: 20200611
  Receipt Date: 20200612
  Transmission Date: 20200714
  Serious: Yes (Hospitalization)
  Sender: FDA-Public Use
  Company Number: DE-ABBVIE-20K-062-3403190-00

PATIENT
  Age: 66 Year
  Sex: Male
  Weight: 68 kg

DRUGS (15)
  1. LEVODOPA/CARBIDOPA [Suspect]
     Active Substance: CARBIDOPA\LEVODOPA
     Dosage: MD: 14 ML, CRD:4.4 ML/H (06:00-22:00), ED: 4ML 88MG/H
     Route: 050
     Dates: start: 201608, end: 2016
  2. LEVODOPA/CARBIDOPA [Suspect]
     Active Substance: CARBIDOPA\LEVODOPA
     Dosage: MD: 14 ML, CRD:4.4 ML/H (06:00-22:00), ED: 4ML
     Route: 050
     Dates: start: 201609
  3. FORSTEO [Concomitant]
     Active Substance: TERIPARATIDE
     Indication: PRODUCT USED FOR UNKNOWN INDICATION
     Route: 058
  4. VITAMIN B DUO [Concomitant]
     Indication: PRODUCT USED FOR UNKNOWN INDICATION
  5. LEVODOPA/CARBIDOPA [Suspect]
     Active Substance: CARBIDOPA\LEVODOPA
     Dosage: 92 MG/H  MD: 14ML, CRD: 4.2ML/H, BOLUS: 2ML
     Route: 050
     Dates: start: 201603, end: 201608
  6. MADOPAR DEPOT [Concomitant]
     Active Substance: BENSERAZIDE HYDROCHLORIDE\LEVODOPA
     Indication: PARKINSON^S DISEASE
     Dosage: 125 MG, 100/25 MG
     Route: 048
     Dates: start: 201509
  7. SORMODREN [Concomitant]
     Active Substance: BORNAPRINE HYDROCHLORIDE
     Indication: PARKINSON^S DISEASE
     Route: 048
     Dates: start: 201608
  8. MOVICOL [Concomitant]
     Active Substance: POLYETHYLENE GLYCOL 3350\POTASSIUM CHLORIDE\SODIUM BICARBONATE\SODIUM CHLORIDE
     Indication: PRODUCT USED FOR UNKNOWN INDICATION
  9. PAROXETIN [Concomitant]
     Active Substance: PAROXETINE HYDROCHLORIDE
     Indication: PRODUCT USED FOR UNKNOWN INDICATION
  10. METFORMIN [Concomitant]
     Active Substance: METFORMIN HYDROCHLORIDE
     Indication: PRODUCT USED FOR UNKNOWN INDICATION
  11. OXYCODON [Concomitant]
     Active Substance: OXYCODONE
     Indication: PRODUCT USED FOR UNKNOWN INDICATION
     Dosage: 20/10 MG
  12. LEVODOPA/CARBIDOPA [Suspect]
     Active Substance: CARBIDOPA\LEVODOPA
     Indication: PARKINSON^S DISEASE
     Dosage: 280 MG FREQUENCY: 1, 14 ML 6-22:00 4.6ML/H, BOLUS: 2ML
     Route: 050
     Dates: start: 20151027, end: 201603
  13. EXELON [Concomitant]
     Active Substance: RIVASTIGMINE TARTRATE
     Indication: PRODUCT USED FOR UNKNOWN INDICATION
     Dosage: 4.6 MG/24H
     Route: 062
  14. PANTOZOL [Concomitant]
     Active Substance: PANTOPRAZOLE SODIUM
     Indication: PRODUCT USED FOR UNKNOWN INDICATION
  15. FOLIC ACID. [Concomitant]
     Active Substance: FOLIC ACID
     Indication: PRODUCT USED FOR UNKNOWN INDICATION

REACTIONS (8)
  - Mobility decreased [Recovered/Resolved]
  - Akinesia [Recovered/Resolved]
  - Hyperkinesia [Recovered/Resolved]
  - On and off phenomenon [Recovered/Resolved]
  - Peripheral sensory neuropathy [Recovered/Resolved]
  - Carpal tunnel syndrome [Recovered/Resolved]
  - Acute motor axonal neuropathy [Recovered/Resolved]
  - Fall [Recovered/Resolved]

NARRATIVE: CASE EVENT DATE: 20160319
